FAERS Safety Report 4326371-2 (Version None)
Quarter: 2004Q1

REPORT INFORMATION
  Report Type: 
  Country: None (occurrence: None)
  Receive Date: 20040330
  Receipt Date: 20040319
  Transmission Date: 20041129
  Serious: Yes (Other)
  Sender: FDA-Public Use
  Company Number: PHRM2004FR01270

PATIENT
  Age: 55 Year
  Sex: Female

DRUGS (1)
  1. NEORAL [Suspect]
     Indication: T-CELL LYMPHOMA
     Dosage: 180 MG, BID
     Route: 048
     Dates: start: 20040101

REACTIONS (2)
  - PAPILLOEDEMA [None]
  - VISUAL ACUITY REDUCED [None]
